FAERS Safety Report 9456886 (Version 5)
Quarter: 2015Q3

REPORT INFORMATION
  Report Type: Report from Study
  Country: AU (occurrence: AU)
  Receive Date: 20130813
  Receipt Date: 20150924
  Transmission Date: 20151125
  Serious: Yes (Other)
  Sender: FDA-Public Use
  Company Number: AU-ROCHE-1261128

PATIENT
  Age: 56 Year
  Sex: Female

DRUGS (3)
  1. ACTEMRA [Suspect]
     Active Substance: TOCILIZUMAB
     Route: 042
  2. ACTEMRA [Suspect]
     Active Substance: TOCILIZUMAB
     Route: 042
  3. ACTEMRA [Suspect]
     Active Substance: TOCILIZUMAB
     Indication: RHEUMATOID ARTHRITIS
     Route: 042
     Dates: start: 20110812

REACTIONS (18)
  - Diarrhoea [Recovered/Resolved]
  - Dizziness [Unknown]
  - Pyrexia [Recovered/Resolved]
  - Ear pain [Recovered/Resolved]
  - Vomiting [Recovered/Resolved]
  - Paraesthesia [Unknown]
  - Nausea [Recovered/Resolved]
  - Bacterial infection [Unknown]
  - Nasal congestion [Recovered/Resolved]
  - Viral infection [Recovered/Resolved]
  - Seasonal allergy [Recovered/Resolved]
  - Ear infection [Recovered/Resolved]
  - Viral infection [Unknown]
  - Oropharyngeal pain [Recovering/Resolving]
  - Malaise [Unknown]
  - Headache [Recovered/Resolved]
  - Pain [Recovered/Resolved]
  - Headache [Recovered/Resolved]

NARRATIVE: CASE EVENT DATE: 201307
